FAERS Safety Report 18671306 (Version 3)
Quarter: 2021Q1

REPORT INFORMATION
  Report Type: Report from Study
  Country: AT (occurrence: AT)
  Receive Date: 20201228
  Receipt Date: 20210316
  Transmission Date: 20210419
  Serious: Yes (Other)
  Sender: FDA-Public Use
  Company Number: AT-PFIZER INC-2020298466

PATIENT
  Age: 72 Year
  Sex: Male

DRUGS (11)
  1. ENCORAFENIB [Suspect]
     Active Substance: ENCORAFENIB
     Indication: MALIGNANT MELANOMA
     Dosage: 450 MG, 1X/DAY
     Route: 048
     Dates: start: 20200625
  2. CANDESARTAN. [Concomitant]
     Active Substance: CANDESARTAN
     Dosage: UNK
     Route: 065
  3. CEREBOKAN [Concomitant]
     Active Substance: GINKGO
     Dosage: UNK
     Route: 065
  4. VITAMINS WITH MINERALS [Concomitant]
     Active Substance: MINERALS\VITAMINS
     Dosage: UNK
     Route: 065
     Dates: start: 20200109, end: 20200709
  5. URBASON [METHYLPREDNISOLONE ACETATE] [Concomitant]
     Dosage: UNK
     Route: 065
     Dates: start: 20200109, end: 20200709
  6. PROSTA URGENIN [Concomitant]
     Active Substance: SERENOA REPENS WHOLE
     Indication: BENIGN PROSTATIC HYPERPLASIA
     Dosage: UNK
     Route: 065
  7. BINIMETINIB [Suspect]
     Active Substance: BINIMETINIB
     Indication: MALIGNANT MELANOMA
     Dosage: 45 MG, 2X/DAY
     Route: 048
     Dates: start: 20200625
  8. BINIMETINIB [Suspect]
     Active Substance: BINIMETINIB
     Dosage: 30 MG, 2X/DAY
     Route: 048
     Dates: start: 20201212
  9. METFORMIN [Concomitant]
     Active Substance: METFORMIN HYDROCHLORIDE
     Dosage: UNK
     Route: 065
  10. PANTOPRAZOL [PANTOPRAZOLE SODIUM SESQUIHYDRATE] [Concomitant]
     Active Substance: PANTOPRAZOLE SODIUM
     Dosage: UNK
     Route: 065
     Dates: start: 20200109, end: 20200709
  11. CEREBOKAN [Concomitant]
     Active Substance: GINKGO
     Indication: PROPHYLAXIS
     Dosage: UNK
     Route: 065

REACTIONS (7)
  - Vertigo [Recovered/Resolved]
  - Blood creatine phosphokinase increased [Recovered/Resolved]
  - Gamma-glutamyltransferase increased [Recovering/Resolving]
  - Visual impairment [Recovered/Resolved]
  - Cerebrovascular accident [Unknown]
  - Systolic dysfunction [Unknown]
  - Constipation [Unknown]

NARRATIVE: CASE EVENT DATE: 20200625
